FAERS Safety Report 20086380 (Version 5)
Quarter: 2023Q2

REPORT INFORMATION
  Report Type: Report from Study
  Country: US (occurrence: US)
  Receive Date: 20211118
  Receipt Date: 20230518
  Transmission Date: 20230722
  Serious: Yes (Hospitalization, Other)
  Sender: FDA-Public Use
  Company Number: US-AKCEA THERAPEUTICS, INC.-2021IS001606

PATIENT

DRUGS (1)
  1. TEGSEDI [Suspect]
     Active Substance: INOTERSEN SODIUM
     Indication: Hereditary neuropathic amyloidosis
     Dosage: 284 MG, QW
     Route: 058
     Dates: start: 20190716

REACTIONS (18)
  - Infection [Recovering/Resolving]
  - Pain in extremity [Recovering/Resolving]
  - Disease progression [Unknown]
  - Crystal urine present [Unknown]
  - Urine ketone body present [Unknown]
  - Glucose urine present [Not Recovered/Not Resolved]
  - Urinary casts [Unknown]
  - Specific gravity urine abnormal [Unknown]
  - Blood glucose abnormal [Recovering/Resolving]
  - Urine protein/creatinine ratio abnormal [Not Recovered/Not Resolved]
  - Urine leukocyte esterase positive [Unknown]
  - Protein urine present [Unknown]
  - Platelet count decreased [Recovered/Resolved]
  - Urine abnormality [Unknown]
  - Blood creatinine increased [Unknown]
  - Glomerular filtration rate decreased [Unknown]
  - Investigation noncompliance [Recovered/Resolved]
  - Ulcer [Unknown]

NARRATIVE: CASE EVENT DATE: 20210731
